FAERS Safety Report 25141521 (Version 1)
Quarter: 2025Q1

REPORT INFORMATION
  Report Type: Spontaneous
  Country: US (occurrence: US)
  Receive Date: 20250331
  Receipt Date: 20250331
  Transmission Date: 20250408
  Serious: No
  Sender: SANOFI AVENTIS
  Company Number: US-SA-2025SA090979

PATIENT
  Age: 43 Year
  Sex: Female

DRUGS (1)
  1. DUPIXENT [Suspect]
     Active Substance: DUPILUMAB
     Indication: Eosinophilic oesophagitis
     Dosage: 300 MG, QOW
     Route: 058
     Dates: start: 202411, end: 202503

REACTIONS (5)
  - Eosinophilic oesophagitis [Unknown]
  - Throat irritation [Unknown]
  - Cough [Unknown]
  - Inflammation [Unknown]
  - Rebound effect [Unknown]

NARRATIVE: CASE EVENT DATE: 20250319
